FAERS Safety Report 14759587 (Version 3)
Quarter: 2018Q2

REPORT INFORMATION
  Report Type: Report from Study
  Country: BR (occurrence: BR)
  Receive Date: 20180413
  Receipt Date: 20180620
  Transmission Date: 20180711
  Serious: Yes (Hospitalization, Other)
  Sender: FDA-Public Use
  Company Number: BR-BAYER-2018-066393

PATIENT
  Age: 61 Year
  Sex: Male

DRUGS (6)
  1. NEXAVAR [Suspect]
     Active Substance: SORAFENIB
     Indication: HEPATOCELLULAR CARCINOMA
     Dosage: 4 DF, QD
     Dates: start: 20180223
  2. NEXAVAR [Suspect]
     Active Substance: SORAFENIB
     Indication: HEPATOCELLULAR CARCINOMA
     Dosage: 4 DF, QD
     Dates: start: 20180320, end: 20180324
  3. MOISTURIZER [Concomitant]
     Active Substance: UNSPECIFIED INGREDIENT
  4. NEXAVAR [Suspect]
     Active Substance: SORAFENIB
     Indication: HEPATOCELLULAR CARCINOMA
     Dosage: 4 DF, QD
     Dates: start: 20180309
  5. NEXAVAR [Suspect]
     Active Substance: SORAFENIB
     Indication: HEPATOCELLULAR CARCINOMA
     Dosage: 4 DF, QD
     Dates: start: 20180325, end: 20180606
  6. NEXAVAR [Suspect]
     Active Substance: SORAFENIB
     Indication: HEPATOCELLULAR CARCINOMA
     Dosage: 4 DF, QD
     Dates: start: 20180314, end: 20180319

REACTIONS (24)
  - Skin exfoliation [Recovering/Resolving]
  - Scab [None]
  - Erythema [Recovered/Resolved]
  - Pain of skin [Recovered/Resolved]
  - Oropharyngeal pain [Recovering/Resolving]
  - Diarrhoea [Not Recovered/Not Resolved]
  - Pruritus generalised [Recovering/Resolving]
  - Gastrooesophageal reflux disease [Not Recovered/Not Resolved]
  - Hospitalisation [None]
  - Musculoskeletal disorder [None]
  - Mood altered [None]
  - Weight decreased [Not Recovered/Not Resolved]
  - Flatulence [None]
  - Fungal oesophagitis [Recovering/Resolving]
  - Limb injury [Recovered/Resolved]
  - Dysphonia [None]
  - General physical health deterioration [Not Recovered/Not Resolved]
  - Food refusal [None]
  - Eschar [Not Recovered/Not Resolved]
  - Blister [Recovering/Resolving]
  - Stomatitis [None]
  - Cough [None]
  - Subcutaneous haematoma [None]
  - Scab [Recovered/Resolved]

NARRATIVE: CASE EVENT DATE: 2018
